FAERS Safety Report 24956860 (Version 2)
Quarter: 2025Q3

REPORT INFORMATION
  Report Type: Spontaneous
  Country: US (occurrence: US)
  Receive Date: 20250211
  Receipt Date: 20250827
  Transmission Date: 20251020
  Serious: No
  Sender: PFIZER
  Company Number: US-PFIZER INC-202500030534

PATIENT
  Age: 59 Year
  Sex: Male

DRUGS (1)
  1. VELSIPITY [Suspect]
     Active Substance: ETRASIMOD ARGININE
     Indication: Colitis ulcerative
     Route: 048
     Dates: start: 202412

REACTIONS (2)
  - Fatigue [Unknown]
  - Therapeutic product effect incomplete [Unknown]
